FAERS Safety Report 21779636 (Version 3)
Quarter: 2023Q1

REPORT INFORMATION
  Report Type: Spontaneous
  Country: JP (occurrence: JP)
  Receive Date: 20221226
  Receipt Date: 20230307
  Transmission Date: 20230417
  Serious: Yes (Hospitalization, Other)
  Sender: FDA-Public Use
  Company Number: JP-DSJP-DSJ-2022-146404

PATIENT
  Age: 70 Year
  Sex: Female
  Weight: 50 kg

DRUGS (16)
  1. EDOXABAN TOSYLATE [Suspect]
     Active Substance: EDOXABAN TOSYLATE
     Indication: Venous thrombosis limb
     Dosage: 30 MG, QD, AFTER BREAKFAST
     Route: 048
     Dates: start: 20210423, end: 20210607
  2. UNSPECIFIED INGREDIENT [Concomitant]
     Active Substance: UNSPECIFIED INGREDIENT
     Indication: Rheumatoid arthritis
     Dosage: UNK
     Route: 065
  3. UNSPECIFIED INGREDIENT [Concomitant]
     Active Substance: UNSPECIFIED INGREDIENT
     Indication: Pleurisy
  4. VONOPRAZAN FUMARATE [Concomitant]
     Active Substance: VONOPRAZAN FUMARATE
     Dosage: 20 MG, QD, AFTER BREAKFAST
     Route: 048
     Dates: start: 20200127
  5. SULFAMETHOXAZOLE\TRIMETHOPRIM [Concomitant]
     Active Substance: SULFAMETHOXAZOLE\TRIMETHOPRIM
     Dosage: 1 DF, QOD, AFTER BREAKFAST
     Route: 048
     Dates: start: 20200512
  6. ELDECALCITOL [Concomitant]
     Active Substance: ELDECALCITOL
     Dosage: 0.75 UG, QD, AFTER BREAKFAST
     Route: 048
     Dates: start: 20201219
  7. MONTELUKAST SODIUM [Concomitant]
     Active Substance: MONTELUKAST SODIUM
     Dosage: 10 MG, QD, AFTER DINNER
     Route: 048
     Dates: start: 20190920
  8. CARBOCYSTEINE [Concomitant]
     Active Substance: CARBOCYSTEINE
     Dosage: 500 MG, TID, AFTER MEAL
     Route: 048
     Dates: start: 20190909
  9. PREDONINE [Concomitant]
     Active Substance: PREDNISOLONE
     Dosage: 5 MG, QD, AFTER BREAKFAST
     Route: 048
     Dates: start: 2015
  10. SITAGLIPTIN [Concomitant]
     Active Substance: SITAGLIPTIN
     Dosage: 50 MG, QD, AFTER BREAKFAST
     Route: 048
     Dates: start: 20201225
  11. BIO-THREE [Concomitant]
     Active Substance: HERBALS
     Dosage: 1 DF, TID, AFTER MEAL
     Route: 048
     Dates: start: 20201225
  12. TELMISARTAN [Concomitant]
     Active Substance: TELMISARTAN
     Dosage: 20 MG, QD, AFTER BREAKFAST
     Route: 048
     Dates: start: 20200713
  13. PREDNISOLONE [Concomitant]
     Active Substance: PREDNISOLONE
     Dosage: 1 MG, QD, AFTER DINNER
     Route: 048
     Dates: start: 2015
  14. FLUTICASONE FUROATE\VILANTEROL TRIFENATATE [Concomitant]
     Active Substance: FLUTICASONE FUROATE\VILANTEROL TRIFENATATE
     Dosage: 1 INHALATION, QD
     Dates: start: 20190904
  15. GLYCOSAMINOGLYCANS [Concomitant]
     Active Substance: GLYCOSAMINOGLYCANS
     Dosage: AS DIRECTED BY A DOCTOR
     Route: 065
  16. GLYCOSAMINOGLYCANS [Concomitant]
     Active Substance: GLYCOSAMINOGLYCANS
     Dosage: AS DIRECTED BY A DOCTOR
     Route: 065

REACTIONS (1)
  - Agranulocytosis [Recovered/Resolved]

NARRATIVE: CASE EVENT DATE: 20210607
